FAERS Safety Report 4317646-1 (Version None)
Quarter: 2004Q1

REPORT INFORMATION
  Report Type: 
  Country: None (occurrence: None)
  Receive Date: 20040315
  Receipt Date: 20040302
  Transmission Date: 20041129
  Serious: Yes (Other)
  Sender: FDA-Public Use
  Company Number: JP-GLAXOSMITHKLINE-B0325141A

PATIENT
  Age: 55 Year
  Sex: Female

DRUGS (1)
  1. SAWACILLIN [Suspect]
     Route: 048
     Dates: start: 20021201

REACTIONS (1)
  - DRUG ERUPTION [None]
